FAERS Safety Report 4612342-5 (Version None)
Quarter: 2005Q1

REPORT INFORMATION
  Report Type: 
  Country: None (occurrence: None)
  Receive Date: 20050308
  Receipt Date: 20041119
  Transmission Date: 20050727
  Serious: Yes (Other)
  Sender: FDA-Public Use
  Company Number: 2004UW23846

PATIENT
  Age: 79 Year
  Sex: Male
  Weight: 81.646 kg

DRUGS (4)
  1. CRESTOR [Suspect]
     Indication: BLOOD CHOLESTEROL INCREASED
     Dosage: 5 MG PO
     Route: 048
  2. NORVASC [Concomitant]
  3. HYZAAR [Concomitant]
  4. ASPIRIN [Concomitant]

REACTIONS (3)
  - MICTURITION URGENCY [None]
  - MYALGIA [None]
  - NAUSEA [None]
